FAERS Safety Report 23448000 (Version 2)
Quarter: 2024Q1

REPORT INFORMATION
  Report Type: Spontaneous
  Country: US (occurrence: US)
  Receive Date: 20240126
  Receipt Date: 20240222
  Transmission Date: 20240409
  Serious: No
  Sender: FDA-Public Use
  Company Number: US-MYLANLABS-2024M1000969

PATIENT
  Age: 53 Year
  Sex: Female
  Weight: 65.77 kg

DRUGS (1)
  1. TYRVAYA [Suspect]
     Active Substance: VARENICLINE TARTRATE
     Indication: Dry eye
     Dosage: 0.03 MILLIGRAM, QD (ONCE DAILY IN THE MORNING)
     Route: 045
     Dates: start: 20231227

REACTIONS (8)
  - Epistaxis [Not Recovered/Not Resolved]
  - Gingival bleeding [Not Recovered/Not Resolved]
  - Pharyngeal swelling [Unknown]
  - Dry throat [Unknown]
  - Dry mouth [Unknown]
  - Cough [Unknown]
  - Drug ineffective [Unknown]
  - Inappropriate schedule of product administration [Unknown]

NARRATIVE: CASE EVENT DATE: 20231227
